FAERS Safety Report 25055441 (Version 1)
Quarter: 2025Q1

REPORT INFORMATION
  Report Type: Spontaneous
  Country: US (occurrence: US)
  Receive Date: 20250308
  Receipt Date: 20250308
  Transmission Date: 20250409
  Serious: Yes (Hospitalization, Other)
  Sender: UNITED THERAPEUTICS
  Company Number: US-UNITED THERAPEUTICS-UNT-2024-042025

PATIENT
  Sex: Female

DRUGS (6)
  1. TYVASO [Suspect]
     Active Substance: TREPROSTINIL
     Indication: Pulmonary arterial hypertension
     Dosage: 42 ?G, QID
     Dates: start: 2024
  2. TYVASO [Suspect]
     Active Substance: TREPROSTINIL
     Dosage: 54 ?G, QID
  3. TYVASO [Suspect]
     Active Substance: TREPROSTINIL
  4. OXYGEN [Suspect]
     Active Substance: OXYGEN
     Indication: Dyspnoea
  5. INSULIN NOS [Suspect]
     Active Substance: INSULIN NOS
     Indication: Product used for unknown indication
  6. LASIX [Suspect]
     Active Substance: FUROSEMIDE
     Indication: Fluid retention

REACTIONS (16)
  - Pleural effusion [Unknown]
  - Loss of consciousness [Unknown]
  - Oxygen saturation decreased [Unknown]
  - Dyspnoea [Unknown]
  - Fluid retention [Unknown]
  - Panic attack [Recovered/Resolved]
  - Blood pressure abnormal [Unknown]
  - Nasal discomfort [Unknown]
  - Hypoglycaemia [Not Recovered/Not Resolved]
  - Heart rate decreased [Unknown]
  - Dyspnoea exertional [Unknown]
  - Anxiety [Unknown]
  - Dizziness [Unknown]
  - Cyanosis [Unknown]
  - Wrong technique in product usage process [Unknown]
  - Product dose omission issue [Recovered/Resolved]

NARRATIVE: CASE EVENT DATE: 20240101
